FAERS Safety Report 23679380 (Version 2)
Quarter: 2024Q3

REPORT INFORMATION
  Report Type: Spontaneous
  Country: CO (occurrence: CO)
  Receive Date: 20240327
  Receipt Date: 20240703
  Transmission Date: 20241017
  Serious: Yes (Other)
  Sender: GLAXOSMITHKLINE
  Company Number: CO-GLAXOSMITHKLINE-CO2024AMR037959

PATIENT

DRUGS (1)
  1. NUCALA [Suspect]
     Active Substance: MEPOLIZUMAB
     Indication: Asthma
     Dosage: 100 MG, Q4W,INJECTION
     Dates: start: 20240224

REACTIONS (3)
  - Cataract [Not Recovered/Not Resolved]
  - Product use in unapproved indication [Unknown]
  - Drug effect less than expected [Unknown]
